FAERS Safety Report 7593065-X (Version None)
Quarter: 2011Q3

REPORT INFORMATION
  Report Type: 
  Country: None (occurrence: None)
  Receive Date: 20110706
  Receipt Date: 20110627
  Transmission Date: 20111222
  Serious: Yes (Hospitalization)
  Sender: FDA-Public Use
  Company Number: DE-TEVA-289004GER

PATIENT
  Sex: Male

DRUGS (1)
  1. AZITHROMYCIN [Suspect]
     Indication: INFECTION
     Dates: start: 20110223

REACTIONS (7)
  - VOMITING [None]
  - DEAFNESS [None]
  - HYPOACUSIS [None]
  - NAUSEA [None]
  - TINNITUS [None]
  - VERTIGO [None]
  - INNER EAR DISORDER [None]
